FAERS Safety Report 22859716 (Version 3)
Quarter: 2023Q4

REPORT INFORMATION
  Report Type: Report from Study
  Country: US (occurrence: US)
  Receive Date: 20230824
  Receipt Date: 20231027
  Transmission Date: 20240109
  Serious: Yes (Hospitalization)
  Sender: FDA-Public Use
  Company Number: US-ALNYLAM PHARMACEUTICALS, INC.-ALN-2023-004098

PATIENT

DRUGS (1)
  1. GIVLAARI [Suspect]
     Active Substance: GIVOSIRAN SODIUM
     Indication: Porphyria acute
     Dosage: UNK, MONTHLY (WGT DOSING)
     Route: 058
     Dates: start: 20230713

REACTIONS (6)
  - Aggression [Unknown]
  - Somnolence [Unknown]
  - Depressed level of consciousness [Unknown]
  - Intentional dose omission [Unknown]
  - Fatigue [Unknown]
  - Abnormal behaviour [Unknown]

NARRATIVE: CASE EVENT DATE: 20230101
